FAERS Safety Report 9464013 (Version 1)
Quarter: 2013Q3

REPORT INFORMATION
  Report Type: Spontaneous
  Country: FR (occurrence: FR)
  Receive Date: 20130819
  Receipt Date: 20130819
  Transmission Date: 20140515
  Serious: Yes (Other)
  Sender: FDA-Public Use
  Company Number: FR-PFIZER INC-2013234989

PATIENT
  Age: 74 Year
  Sex: Male

DRUGS (4)
  1. FLUOROURACILE PFIZER [Suspect]
     Indication: METASTASES TO LIVER
     Dosage: 3250 MG, UNK
     Route: 042
     Dates: start: 20130604, end: 20130604
  2. ELVORINE [Suspect]
     Indication: FOLATE DEFICIENCY
     Dosage: 362 MG, UNK
     Route: 042
     Dates: start: 20130604
  3. AMETYCINE [Suspect]
     Indication: METASTASES TO LIVER
     Dosage: 15 MG, UNK
     Route: 042
     Dates: start: 20130604, end: 20130604
  4. ZOPHREN [Suspect]
     Indication: VOMITING
     Dosage: 8 MG, UNK
     Route: 042
     Dates: start: 20130604

REACTIONS (1)
  - Urticaria [Not Recovered/Not Resolved]
